FAERS Safety Report 5144533-1 (Version None)
Quarter: 2006Q4

REPORT INFORMATION
  Report Type: 
  Country: None (occurrence: None)
  Receive Date: 20061031
  Receipt Date: 20061020
  Transmission Date: 20070319
  Serious: Yes (Hospitalization)
  Sender: FDA-Public Use
  Company Number: RB-4209-2006

PATIENT
  Age: 34 Year
  Sex: Female

DRUGS (1)
  1. SUBUTEX [Suspect]
     Indication: DRUG DEPENDENCE
     Dosage: SUBLINGUAL TABLET; INTRAVENOUS
     Route: 042

REACTIONS (5)
  - ABSCESS [None]
  - CANDIDIASIS [None]
  - INFECTION [None]
  - INTERVERTEBRAL DISCITIS [None]
  - RASH PUSTULAR [None]
